FAERS Safety Report 12192279 (Version 1)
Quarter: 2016Q1

REPORT INFORMATION
  Report Type: Spontaneous
  Country: US (occurrence: US)
  Receive Date: 20160318
  Receipt Date: 20160318
  Transmission Date: 20160526
  Serious: Yes (Other)
  Sender: FDA-Public Use
  Company Number: US-SA-2016SA053113

PATIENT
  Age: 75 Year
  Sex: Male

DRUGS (2)
  1. AMIODARONE [Suspect]
     Active Substance: AMIODARONE
     Route: 065
  2. MULTAQ [Suspect]
     Active Substance: DRONEDARONE
     Indication: ATRIAL FIBRILLATION
     Dosage: END DATE: AFTER 3 MOS OF USE
     Route: 065
     Dates: start: 2016

REACTIONS (3)
  - Cataract operation [Unknown]
  - Sleep disorder [Unknown]
  - Deposit eye [Unknown]

NARRATIVE: CASE EVENT DATE: 2015
